FAERS Safety Report 18769238 (Version 1)
Quarter: 2021Q1

REPORT INFORMATION
  Report Type: Spontaneous
  Country: TR (occurrence: TR)
  Receive Date: 20210121
  Receipt Date: 20210121
  Transmission Date: 20210419
  Serious: Yes (Other)
  Sender: FDA-Public Use
  Company Number: TR-INCYTE CORPORATION-2021IN000407

PATIENT

DRUGS (1)
  1. JAKAVI [Suspect]
     Active Substance: RUXOLITINIB
     Indication: MYELODYSPLASTIC SYNDROME
     Dosage: UNK, BID (TWICE A DAY (MORNING + EVENING))
     Route: 065

REACTIONS (3)
  - Full blood count decreased [Unknown]
  - Anxiety [Unknown]
  - Product use in unapproved indication [Unknown]
